FAERS Safety Report 16135302 (Version 1)
Quarter: 2019Q1

REPORT INFORMATION
  Report Type: Spontaneous
  Country: US (occurrence: US)
  Receive Date: 20190329
  Receipt Date: 20190329
  Transmission Date: 20190418
  Serious: No
  Sender: FDA-Public Use
  Company Number: US-SA-2019SA083925

PATIENT

DRUGS (1)
  1. XYZAL [Suspect]
     Active Substance: LEVOCETIRIZINE DIHYDROCHLORIDE
     Indication: HYPERSENSITIVITY
     Dosage: ONLY TOOK HALF A DOSE

REACTIONS (4)
  - Hypersomnia [Unknown]
  - Intentional product use issue [Unknown]
  - Somnolence [Unknown]
  - Fatigue [Unknown]
